FAERS Safety Report 14679410 (Version 2)
Quarter: 2018Q2

REPORT INFORMATION
  Report Type: Report from Study
  Country: AR (occurrence: AR)
  Receive Date: 20180326
  Receipt Date: 20180404
  Transmission Date: 20180711
  Serious: Yes (Death, Life-Threatening, Hospitalization)
  Sender: FDA-Public Use
  Company Number: PHHY2018AR051676

PATIENT
  Age: 89 Year
  Sex: Male

DRUGS (1)
  1. ENTRESTO [Suspect]
     Active Substance: SACUBITRIL\VALSARTAN
     Indication: CARDIAC FAILURE
     Dosage: 50 MG, BID
     Route: 065
     Dates: start: 201704, end: 20171030

REACTIONS (16)
  - Cardiac arrest [Unknown]
  - Underweight [Unknown]
  - Urinary retention [Unknown]
  - Food intolerance [Unknown]
  - Death [Fatal]
  - Hypotension [Unknown]
  - Fall [Unknown]
  - Gait inability [Unknown]
  - Skin atrophy [Unknown]
  - Syncope [Unknown]
  - Infarction [Unknown]
  - Malaise [Unknown]
  - Renal failure [Unknown]
  - Prostatic disorder [Unknown]
  - Injury [Unknown]
  - Rib fracture [Unknown]

NARRATIVE: CASE EVENT DATE: 20171030
